FAERS Safety Report 8444497-9 (Version None)
Quarter: 2012Q2

REPORT INFORMATION
  Report Type: 
  Country: None (occurrence: None)
  Receive Date: 20120612
  Receipt Date: 20120612
  Transmission Date: 20120825
  Serious: Yes (Other)
  Sender: FDA-Public Use
  Company Number: None

PATIENT
  Age: 41 Year
  Sex: Female
  Weight: 76 kg

DRUGS (1)
  1. CARBAMAZEPINE [Suspect]
     Indication: MOOD ALTERED
     Dosage: 300MG TID ORAL
     Route: 048
     Dates: start: 20110608, end: 20111202

REACTIONS (2)
  - HYPONATRAEMIA [None]
  - NEUTROPENIA [None]
